FAERS Safety Report 7294850-4 (Version None)
Quarter: 2011Q1

REPORT INFORMATION
  Report Type: 
  Country: None (occurrence: None)
  Receive Date: 20110216
  Receipt Date: 20110207
  Transmission Date: 20110831
  Serious: Yes (Hospitalization)
  Sender: FDA-Public Use
  Company Number: GB-JNJFOC-20110202226

PATIENT
  Sex: Female
  Weight: 90.4 kg

DRUGS (12)
  1. REMICADE [Suspect]
     Route: 042
  2. MERCAPTOPURINE [Concomitant]
     Indication: CROHN'S DISEASE
  3. METFORMIN HCL [Concomitant]
     Indication: DIABETES MELLITUS
  4. PIOGLITAZONE [Concomitant]
     Indication: DIABETES MELLITUS
  5. GABAPENTIN [Concomitant]
  6. PENTASA [Concomitant]
     Indication: CROHN'S DISEASE
  7. REMICADE [Suspect]
     Route: 042
  8. GAVISCON [Concomitant]
  9. SIMVASTATIN [Concomitant]
     Indication: BLOOD CHOLESTEROL
  10. FUROSEMIDE [Concomitant]
     Indication: DIABETES MELLITUS
  11. IBUPROFEN [Concomitant]
     Indication: ANALGESIC THERAPY
  12. REMICADE [Suspect]
     Indication: CROHN'S DISEASE
     Route: 042

REACTIONS (2)
  - OEDEMA PERIPHERAL [None]
  - RENAL IMPAIRMENT [None]
